FAERS Safety Report 13973972 (Version 2)
Quarter: 2017Q3

REPORT INFORMATION
  Report Type: Spontaneous
  Country: KR (occurrence: KR)
  Receive Date: 20170915
  Receipt Date: 20170925
  Transmission Date: 20171128
  Serious: Yes (Other)
  Sender: FDA-Public Use
  Company Number: KR-PFIZER INC-2017393953

PATIENT
  Age: 8 Decade
  Sex: Female

DRUGS (4)
  1. LIVARO [Concomitant]
     Indication: HYPERLIPIDAEMIA
     Dosage: 2 MG, UNK
     Route: 048
  2. CELEBREX [Suspect]
     Active Substance: CELECOXIB
     Indication: SPINAL COLUMN STENOSIS
     Dosage: 200 MG, 2X/DAY
     Route: 048
     Dates: start: 2016, end: 201705
  3. ASPIRIN /00002701/ [Concomitant]
     Active Substance: ASPIRIN
     Dosage: UNK
     Route: 048
  4. NEURONTIN [Suspect]
     Active Substance: GABAPENTIN
     Indication: SPINAL COLUMN STENOSIS
     Dosage: 100 MG, 2X/DAY
     Route: 048
     Dates: start: 2016, end: 201705

REACTIONS (10)
  - Carotid artery occlusion [Not Recovered/Not Resolved]
  - Dizziness [Unknown]
  - Intentional product misuse [Unknown]
  - Anaemia [Unknown]
  - Condition aggravated [Not Recovered/Not Resolved]
  - Headache [Recovering/Resolving]
  - Tremor [Recovering/Resolving]
  - Parosmia [Recovering/Resolving]
  - Feeling hot [Unknown]
  - Drug ineffective [Unknown]

NARRATIVE: CASE EVENT DATE: 2017
